FAERS Safety Report 12408247 (Version 1)
Quarter: 2016Q2

REPORT INFORMATION
  Report Type: Spontaneous
  Country: US (occurrence: US)
  Receive Date: 20160526
  Receipt Date: 20160526
  Transmission Date: 20160815
  Serious: No
  Sender: FDA-Public Use
  Company Number: US-BIOGEN-2016BI00235048

PATIENT
  Sex: Female

DRUGS (1)
  1. TECFIDERA [Suspect]
     Active Substance: DIMETHYL FUMARATE
     Indication: MULTIPLE SCLEROSIS
     Route: 048
     Dates: start: 20140205

REACTIONS (9)
  - Physiotherapy [Unknown]
  - Muscle strain [Unknown]
  - Occupational therapy [Unknown]
  - Dry eye [Unknown]
  - Joint dislocation [Unknown]
  - Speech rehabilitation [Unknown]
  - Fall [Unknown]
  - Ligament injury [Unknown]
  - Cataract [Unknown]
